FAERS Safety Report 9416822 (Version 2)
Quarter: 2014Q3

REPORT INFORMATION
  Report Type: Spontaneous
  Country: US (occurrence: US)
  Receive Date: 20130724
  Receipt Date: 20140723
  Transmission Date: 20150326
  Serious: No
  Sender: FDA-Public Use
  Company Number: US-GALDERMA-US13001552

PATIENT
  Age: 63 Year
  Sex: Male
  Weight: 81.72 kg

DRUGS (10)
  1. ORACEA [Suspect]
     Active Substance: DOXYCYCLINE
     Indication: OCULAR ROSACEA
     Route: 048
     Dates: start: 20120829
  2. NEXIUM [Concomitant]
     Active Substance: ESOMEPRAZOLE MAGNESIUM
     Indication: GASTROOESOPHAGEAL REFLUX DISEASE
     Route: 048
     Dates: start: 201003
  3. RESTASIS [Concomitant]
     Active Substance: CYCLOSPORINE
     Indication: EYE IRRITATION
     Route: 031
     Dates: start: 20120829
  4. REFRESH ADVANCED EYE DROPS [Concomitant]
     Indication: EYE IRRITATION
     Route: 031
     Dates: start: 20120829
  5. RESTASIS [Concomitant]
     Active Substance: CYCLOSPORINE
     Indication: DRY EYE
  6. FLUOROMETHOLONE. [Concomitant]
     Active Substance: FLUOROMETHOLONE
     Route: 031
  7. LORATADINE. [Concomitant]
     Active Substance: LORATADINE
     Indication: MULTIPLE ALLERGIES
     Route: 048
     Dates: start: 201112
  8. LISINOPRIL. [Concomitant]
     Active Substance: LISINOPRIL
     Indication: BLOOD PRESSURE
     Route: 048
     Dates: start: 201112
  9. REFRESH ADVANCED EYE DROPS [Concomitant]
     Indication: DRY EYE
  10. VERAMYST [Concomitant]
     Active Substance: FLUTICASONE FUROATE
     Route: 045
     Dates: start: 201208

REACTIONS (7)
  - Off label use [Recovered/Resolved]
  - Eye irritation [Recovering/Resolving]
  - Ocular discomfort [Recovered/Resolved]
  - Eye inflammation [Recovering/Resolving]
  - Vision blurred [Recovering/Resolving]
  - Foreign body sensation in eyes [Recovering/Resolving]
  - Abnormal sensation in eye [Recovering/Resolving]

NARRATIVE: CASE EVENT DATE: 201207
